FAERS Safety Report 12170739 (Version 1)
Quarter: 2016Q1

REPORT INFORMATION
  Report Type: Spontaneous
  Country: US (occurrence: None)
  Receive Date: 20160310
  Receipt Date: 20160310
  Transmission Date: 20160526
  Serious: Yes (Other)
  Sender: FDA-Public Use
  Company Number: None

PATIENT
  Age: 64 Year
  Sex: Male
  Weight: 154.22 kg

DRUGS (10)
  1. VITAMIN D [Concomitant]
     Active Substance: CHOLECALCIFEROL
  2. FISH OIL [Concomitant]
     Active Substance: FISH OIL
  3. TRAMADOL. [Suspect]
     Active Substance: TRAMADOL
     Indication: TOOTHACHE
     Dosage: AS NEEDED FOR PAIN
     Route: 048
     Dates: start: 20160302, end: 20160307
  4. LOSARTAN. [Concomitant]
     Active Substance: LOSARTAN
  5. GREEN TEA EXTRACT [Concomitant]
  6. VITAMINS [Concomitant]
     Active Substance: VITAMINS
  7. ASPIRINE [Concomitant]
     Active Substance: ASPIRIN
  8. CINNAMON. [Concomitant]
     Active Substance: CINNAMON
  9. GRAPE SEED [Concomitant]
  10. GLIMAPYRIDE [Concomitant]

REACTIONS (3)
  - Anxiety [None]
  - Drug ineffective [None]
  - Tremor [None]

NARRATIVE: CASE EVENT DATE: 20160307
